FAERS Safety Report 12912746 (Version 2)
Quarter: 2017Q1

REPORT INFORMATION
  Report Type: Report from Study
  Country: CA (occurrence: CA)
  Receive Date: 20161104
  Receipt Date: 20170118
  Transmission Date: 20170428
  Serious: Yes (Other)
  Sender: FDA-Public Use
  Company Number: CA-SA-2016SA195523

PATIENT
  Age: 67 Year
  Sex: Female
  Weight: 75 kg

DRUGS (15)
  1. LOPERAMIDE [Concomitant]
     Active Substance: LOPERAMIDE
     Route: 065
  2. PROCHLORAZINE [Concomitant]
     Route: 065
  3. VENLAFAXINE [Concomitant]
     Active Substance: VENLAFAXINE HYDROCHLORIDE
     Route: 065
  4. DOCUSATE [Concomitant]
     Active Substance: DOCUSATE
     Route: 065
  5. QUINAPRIL HYDROCHLORIDE/HYDROCHLOROTHIAZIDE [Concomitant]
     Route: 065
  6. IMODIUM [Concomitant]
     Active Substance: LOPERAMIDE HYDROCHLORIDE
     Indication: DIARRHOEA
  7. NEULASTA [Concomitant]
     Active Substance: PEGFILGRASTIM
     Dosage: SOLUTION?SUBCUTANEOUS
     Route: 065
  8. TAXOTERE [Suspect]
     Active Substance: DOCETAXEL
     Indication: PRODUCT USED FOR UNKNOWN INDICATION
     Dosage: SOLUTION?INTRAVENOUS
     Route: 042
     Dates: start: 20110729
  9. TRASTUZUMAB [Suspect]
     Active Substance: TRASTUZUMAB
     Indication: HER-2 POSITIVE BREAST CANCER
     Route: 042
     Dates: start: 20110729
  10. SENNA [Concomitant]
     Active Substance: SENNA LEAF\SENNOSIDES\SENNOSIDES A AND B
     Route: 065
  11. XELODA [Suspect]
     Active Substance: CAPECITABINE
     Indication: HER-2 POSITIVE BREAST CANCER
     Dosage: DOSAGE FORM: TABLET
     Route: 042
  12. CLONAZEPAM. [Concomitant]
     Active Substance: CLONAZEPAM
     Route: 065
  13. PERJETA [Suspect]
     Active Substance: PERTUZUMAB
     Indication: HER-2 POSITIVE BREAST CANCER
     Dosage: SOLUTION?INTRAVENOUS
     Route: 042
     Dates: start: 20150528, end: 20151027
  14. STATEX [Concomitant]
     Active Substance: MORPHINE SULFATE
  15. KADCYLA [Suspect]
     Active Substance: ADO-TRASTUZUMAB EMTANSINE
     Indication: HER-2 POSITIVE BREAST CANCER
     Dosage: POWDER FOR?SOLUTION?INTRAVENOUS
     Route: 042
     Dates: start: 20151126

REACTIONS (27)
  - Blood pressure increased [Unknown]
  - Nasopharyngitis [Recovering/Resolving]
  - Nausea [Unknown]
  - Rash [Unknown]
  - Swelling [Unknown]
  - Dry eye [Unknown]
  - Constipation [Not Recovered/Not Resolved]
  - Drug ineffective [Unknown]
  - Muscular weakness [Not Recovered/Not Resolved]
  - Alopecia [Not Recovered/Not Resolved]
  - Pain in extremity [Not Recovered/Not Resolved]
  - Pruritus [Not Recovered/Not Resolved]
  - Weight decreased [Unknown]
  - Lymphadenopathy [Not Recovered/Not Resolved]
  - Heart rate increased [Unknown]
  - Fatigue [Recovered/Resolved]
  - Discomfort [Unknown]
  - Blood pressure decreased [Unknown]
  - Epistaxis [Recovered/Resolved]
  - Epistaxis [Recovered/Resolved]
  - Pruritus [Recovering/Resolving]
  - Peripheral swelling [Unknown]
  - Feeling abnormal [Recovering/Resolving]
  - Diarrhoea [Unknown]
  - Myalgia [Recovered/Resolved]
  - Weight increased [Not Recovered/Not Resolved]
  - Heart rate increased [Unknown]

NARRATIVE: CASE EVENT DATE: 2015
